FAERS Safety Report 7942563-5 (Version None)
Quarter: 2011Q4

REPORT INFORMATION
  Report Type: 
  Country: None (occurrence: None)
  Receive Date: 20111128
  Receipt Date: 20111116
  Transmission Date: 20120403
  Serious: Yes (Death)
  Sender: FDA-Public Use
  Company Number: LB-GLAXOSMITHKLINE-B0764610A

PATIENT
  Age: 59 Year
  Sex: Female

DRUGS (2)
  1. TYKERB [Suspect]
     Indication: BREAST CANCER METASTATIC
     Dosage: 1250MG PER DAY
     Route: 065
     Dates: start: 20091021, end: 20100520
  2. XELODA [Concomitant]
     Indication: BREAST CANCER METASTATIC
     Route: 065

REACTIONS (5)
  - HEPATIC FAILURE [None]
  - CARDIAC FAILURE [None]
  - BREAST CANCER FEMALE [None]
  - CONDITION AGGRAVATED [None]
  - BREAST CANCER [None]
